FAERS Safety Report 16397877 (Version 1)
Quarter: 2019Q3

REPORT INFORMATION
  Report Type: Spontaneous
  Country: US (occurrence: US)
  Receive Date: 20190605
  Receipt Date: 20190605
  Transmission Date: 20191004
  Serious: Yes (Life-Threatening, Hospitalization)
  Sender: FDA-Public Use
  Company Number: None

PATIENT
  Age: 78 Year
  Sex: Female
  Weight: 78.75 kg

DRUGS (8)
  1. LISINOPRIL. [Concomitant]
     Active Substance: LISINOPRIL
  2. METOPROLOL. [Concomitant]
     Active Substance: METOPROLOL
  3. IRON [Concomitant]
     Active Substance: IRON
  4. JARDIANCE [Concomitant]
     Active Substance: EMPAGLIFLOZIN
  5. LEXISCAN [Suspect]
     Active Substance: REGADENOSON
     Indication: NUCLEAR MAGNETIC RESONANCE IMAGING
     Dates: start: 20190603, end: 20190603
  6. LIPITOR [Concomitant]
     Active Substance: ATORVASTATIN CALCIUM
  7. METFORMIN [Concomitant]
     Active Substance: METFORMIN HYDROCHLORIDE
  8. PROTONIX [Concomitant]
     Active Substance: PANTOPRAZOLE SODIUM

REACTIONS (2)
  - Myocardial infarction [None]
  - Atrial fibrillation [None]

NARRATIVE: CASE EVENT DATE: 20190604
